FAERS Safety Report 6888690-5 (Version None)
Quarter: 2010Q3

REPORT INFORMATION
  Report Type: 
  Country: None (occurrence: None)
  Receive Date: 20100730
  Receipt Date: 20071022
  Transmission Date: 20110219
  Serious: No
  Sender: FDA-Public Use
  Company Number: US-PFIZER INC-2007089475

PATIENT
  Age: 70 Year
  Sex: Male
  Weight: 77.272 kg

DRUGS (2)
  1. LIPITOR [Suspect]
     Indication: BLOOD CHOLESTEROL INCREASED
     Route: 048
  2. ACETYLSALICYLIC ACID SRT [Concomitant]

REACTIONS (3)
  - BURSITIS [None]
  - MYALGIA [None]
  - OSTEOARTHRITIS [None]
